FAERS Safety Report 6909696-3 (Version None)
Quarter: 2010Q3

REPORT INFORMATION
  Report Type: 
  Country: None (occurrence: None)
  Receive Date: 20100805
  Receipt Date: 20100728
  Transmission Date: 20110219
  Serious: Yes (Other)
  Sender: FDA-Public Use
  Company Number: GR-AMGEN-QUU424150

PATIENT
  Age: 41 Year
  Sex: Female

DRUGS (2)
  1. ENBREL [Suspect]
     Indication: PSORIATIC ARTHROPATHY
     Route: 058
     Dates: start: 20070101, end: 20100708
  2. ENBREL [Suspect]
     Indication: PSORIASIS

REACTIONS (2)
  - RETINAL VASCULITIS [None]
  - RETINAL VEIN THROMBOSIS [None]
